FAERS Safety Report 5027912-2 (Version None)
Quarter: 2006Q2

REPORT INFORMATION
  Report Type: 
  Country: None (occurrence: None)
  Receive Date: 20060616
  Receipt Date: 20060602
  Transmission Date: 20061013
  Serious: Yes (Hospitalization)
  Sender: FDA-Public Use
  Company Number: US-AMGEN-US181964

PATIENT
  Age: 82 Year
  Sex: Female

DRUGS (11)
  1. EPOGEN [Suspect]
     Indication: DIALYSIS
     Route: 042
     Dates: start: 20060120, end: 20060529
  2. DILTIAZEM [Concomitant]
  3. FUROSEMIDE [Concomitant]
  4. AMBIEN [Concomitant]
  5. FLUOXETINE [Concomitant]
  6. PAROXETINE HCL [Concomitant]
  7. GLIPIZIDE [Concomitant]
  8. PRANDIN [Concomitant]
  9. PROTONIX [Concomitant]
  10. VENOFER [Concomitant]
  11. HYDROCHLOROTHIAZIDE [Concomitant]

REACTIONS (8)
  - ASTHENIA [None]
  - EYE INFECTION [None]
  - FAILURE TO THRIVE [None]
  - FLUID OVERLOAD [None]
  - HAEMODIALYSIS-INDUCED SYMPTOM [None]
  - HAEMOGLOBIN DECREASED [None]
  - MALNUTRITION [None]
  - WHITE BLOOD CELL COUNT DECREASED [None]
